FAERS Safety Report 9935039 (Version 2)
Quarter: 2014Q2

REPORT INFORMATION
  Report Type: Spontaneous
  Country: US (occurrence: US)
  Receive Date: 20140228
  Receipt Date: 20140505
  Transmission Date: 20141212
  Serious: Yes (Other)
  Sender: FDA-Public Use
  Company Number: US-PFIZER INC-2014056789

PATIENT
  Age: 17 Year
  Sex: Female

DRUGS (1)
  1. PROVERA [Suspect]
     Dosage: UNK

REACTIONS (2)
  - Angioedema [Unknown]
  - Throat tightness [Unknown]
